FAERS Safety Report 8879609 (Version 1)
Quarter: 2012Q4

REPORT INFORMATION
  Report Type: 
  Country: US (occurrence: US)
  Receive Date: 20121101
  Receipt Date: 20121101
  Transmission Date: 20130627
  Serious: Yes (Hospitalization)
  Sender: FDA-Public Use
  Company Number: US-ASTELLAS-2012US010588

PATIENT
  Age: 60 Year
  Sex: Male
  Weight: 77 kg

DRUGS (38)
  1. PROGRAF [Suspect]
     Indication: LIVER TRANSPLANT
     Dosage: 1 mg every morning, 0.5 mg every evening
     Route: 048
     Dates: start: 20110421, end: 20110430
  2. ANIDULAFUNGIN\FLUCONAZOLE [Suspect]
     Indication: ANTIFUNGAL PROPHYLAXIS
     Dosage: 200 mg, UID/QD
     Route: 042
     Dates: start: 20110421, end: 20110520
  3. PANTOPRAZOLE [Concomitant]
     Indication: GASTROOESOPHAGEAL REFLUX PROPHYLAXIS
     Dosage: UNK
     Route: 048
     Dates: start: 20110420
  4. PANTOPRAZOLE [Concomitant]
     Dosage: UNK
     Route: 050
  5. DOCUSATE [Concomitant]
     Indication: CONSTIPATION PROPHYLAXIS
     Dosage: UNK
     Route: 048
     Dates: start: 20110420
  6. SEVELAMER [Concomitant]
     Indication: HYPERPHOSPHATAEMIA
     Dosage: UNK
     Route: 048
     Dates: start: 20110420
  7. ALBUMIN [Concomitant]
     Indication: DIURETIC THERAPY
     Dosage: UNK
     Route: 042
     Dates: start: 20110420, end: 20110425
  8. SODIUM BICARBONATE [Concomitant]
     Indication: SUPPLEMENTATION THERAPY
     Dosage: UNK
     Route: 048
     Dates: start: 20110420, end: 20110420
  9. MIDODRINE [Concomitant]
     Indication: PROPHYLAXIS
     Dosage: UNK
     Route: 048
     Dates: start: 20110420, end: 20110420
  10. MAGNESIUM OXIDE [Concomitant]
     Indication: SUPPLEMENTATION THERAPY
     Dosage: UNK
     Route: 048
     Dates: start: 20110420, end: 20110420
  11. OCTREOTIDE [Concomitant]
     Indication: PROPHYLAXIS
     Dosage: UNK
     Route: 058
     Dates: start: 20110420, end: 20110420
  12. RIFAXIMIN [Concomitant]
     Indication: HEPATIC ENCEPHALOPATHY PROPHYLAXIS
     Dosage: UNK
     Route: 048
     Dates: start: 20110420, end: 20110420
  13. LASIX                              /00032601/ [Concomitant]
     Indication: DIURETIC THERAPY
     Dosage: UNK
     Route: 042
     Dates: start: 20110427, end: 20110428
  14. PHYTONADIONE [Concomitant]
     Indication: HAEMORRHAGE PROPHYLAXIS
     Dosage: UNK
     Route: 058
     Dates: start: 20110426, end: 20110428
  15. VITAMINS                           /90003601/ [Concomitant]
     Indication: SUPPLEMENTATION THERAPY
     Dosage: UNK
     Route: 048
     Dates: start: 20110421
  16. METHYLPREDNISOLONE [Concomitant]
     Indication: IMMUNOSUPPRESSION
     Dosage: UNK
     Route: 042
     Dates: start: 20110422, end: 20110427
  17. MYCOPHENOLATE [Concomitant]
     Indication: IMMUNOSUPPRESSION
     Dosage: UNK
     Route: 048
     Dates: start: 20110421
  18. ACTIGALL [Concomitant]
     Indication: PROPHYLAXIS
     Dosage: UNK
     Route: 048
     Dates: start: 20110421
  19. BASILIXIMAB [Concomitant]
     Indication: IMMUNOSUPPRESSION
     Dosage: UNK
     Route: 042
     Dates: start: 20110425, end: 20110425
  20. GANCICLOVIR [Concomitant]
     Indication: ANTIVIRAL PROPHYLAXIS
     Dosage: UNK
     Route: 042
     Dates: start: 20110421
  21. COTRIMOXAZOLE [Concomitant]
     Indication: ANTIFUNGAL PROPHYLAXIS
     Dosage: UNK
     Route: 048
     Dates: start: 20110423, end: 20110424
  22. UNASYN                             /00917901/ [Concomitant]
     Indication: ANTIBIOTIC PROPHYLAXIS
     Dosage: UNK
     Route: 042
     Dates: start: 20110421, end: 20110421
  23. METOPROLOL [Concomitant]
     Indication: BLOOD PRESSURE
     Dosage: UNK
     Route: 050
     Dates: start: 20110426
  24. AMIODARONE [Concomitant]
     Indication: ATRIAL FIBRILLATION
     Dosage: UNK
     Route: 042
     Dates: start: 20110424, end: 20110426
  25. BROMOCRIPTINE [Concomitant]
     Indication: PRODUCT USED FOR UNKNOWN INDICATION
     Dosage: UNK
     Route: 050
     Dates: start: 20110426
  26. VERSED [Concomitant]
     Indication: DISCOMFORT
     Dosage: UNK
     Route: 042
     Dates: start: 20110421, end: 20110426
  27. BENADRYL                           /00000402/ [Concomitant]
     Indication: PREMEDICATION
     Dosage: UNK
     Route: 042
     Dates: start: 20110427, end: 20110427
  28. ROCURONIUM [Concomitant]
     Indication: ANAESTHESIA PROCEDURE
     Dosage: UNK
     Route: 042
     Dates: start: 20110428, end: 20110428
  29. VANCOMYCIN [Concomitant]
     Indication: ANTIBIOTIC PROPHYLAXIS
     Dosage: UNK
     Route: 042
     Dates: start: 20110428
  30. ZOSYN [Concomitant]
     Indication: ANTIBIOTIC PROPHYLAXIS
     Dosage: UNK
     Route: 042
     Dates: start: 20110428
  31. CALCIUM GLUCONATE [Concomitant]
     Indication: SUPPLEMENTATION THERAPY
     Dosage: UNK
     Route: 042
     Dates: start: 20110428, end: 20110428
  32. MAGNESIUM SULFATE [Concomitant]
     Indication: SUPPLEMENTATION THERAPY
     Dosage: UNK
     Route: 042
     Dates: start: 20110422, end: 20110426
  33. ETOMIDATE [Concomitant]
     Indication: ANAESTHESIA PROCEDURE
     Dosage: UNK
     Route: 042
     Dates: start: 20110428, end: 20110428
  34. NOREPINEPHRINE [Concomitant]
     Indication: BLOOD PRESSURE
     Dosage: UNK
     Route: 042
     Dates: start: 20110428, end: 20110430
  35. ATROPINE [Concomitant]
     Indication: BRADYCARDIA
     Dosage: UNK
     Route: 042
     Dates: start: 20110428, end: 20110428
  36. FENTANYL [Concomitant]
     Indication: PAIN MANAGEMENT
     Dosage: UNK
     Route: 042
     Dates: start: 20110421, end: 20110421
  37. INSULIN [Concomitant]
     Indication: BLOOD GLUCOSE
     Dosage: UNK
     Route: 042
     Dates: start: 20110422
  38. HYDROMORPHONE [Concomitant]
     Indication: PAIN MANAGEMENT
     Dosage: UNK
     Route: 042
     Dates: start: 20110422, end: 20110422

REACTIONS (2)
  - Haematoma [Recovered/Resolved]
  - Pelvic venous thrombosis [Recovered/Resolved]
